FAERS Safety Report 23187850 (Version 1)
Quarter: 2023Q4

REPORT INFORMATION
  Report Type: Spontaneous
  Country: US (occurrence: US)
  Receive Date: 20231115
  Receipt Date: 20231115
  Transmission Date: 20240109
  Serious: Yes (Other)
  Sender: FDA-Public Use
  Company Number: US-NOVOPROD-1116307

PATIENT
  Age: 61 Year
  Sex: Male

DRUGS (3)
  1. NOVOLOG [Suspect]
     Active Substance: INSULIN ASPART
     Dosage: 134 IU, QD, AVERAGE
     Route: 058
     Dates: end: 20230909
  2. NOVOLOG [Suspect]
     Active Substance: INSULIN ASPART
     Dosage: BASED ON BASAL RATE
     Route: 058
  3. NOVOLOG [Suspect]
     Active Substance: INSULIN ASPART
     Indication: Type 1 diabetes mellitus
     Dosage: 74 IU, QD, AVERAGE
     Route: 058
     Dates: start: 20230815

REACTIONS (6)
  - Blood glucose increased [Recovered/Resolved]
  - Malaise [Recovered/Resolved]
  - Product quality issue [Recovered/Resolved]
  - Drug ineffective [Recovered/Resolved]
  - Blood glucose increased [Recovered/Resolved]
  - Injection site scar [Recovered/Resolved]

NARRATIVE: CASE EVENT DATE: 20230815
